FAERS Safety Report 8339886-7 (Version None)
Quarter: 2012Q2

REPORT INFORMATION
  Report Type: 
  Country: None (occurrence: None)
  Receive Date: 20120507
  Receipt Date: 20081022
  Transmission Date: 20120825
  Serious: No
  Sender: FDA-Public Use
  Company Number: US-TEVA-2008000434

PATIENT
  Sex: Male

DRUGS (1)
  1. TREANDA [Suspect]
     Dosage: CYCLE 2, DAY 2
     Route: 042
     Dates: start: 20081022

REACTIONS (1)
  - TONGUE DISCOLOURATION [None]
